FAERS Safety Report 23672251 (Version 1)
Quarter: 2024Q1

REPORT INFORMATION
  Report Type: Spontaneous
  Country: CY (occurrence: None)
  Receive Date: 20240326
  Receipt Date: 20240326
  Transmission Date: 20240410
  Serious: Yes (Other)
  Sender: FDA-Public Use
  Company Number: CY-ROCHE-3530289

PATIENT
  Sex: Male

DRUGS (1)
  1. POLIVY [Suspect]
     Active Substance: POLATUZUMAB VEDOTIN-PIIQ
     Indication: Diffuse large B-cell lymphoma
     Dosage: POLA-R-CHP- TREATMENT REGIME / 2 FULL CYCLES OF POLATUZUMAB VEDOTIN
     Route: 065

REACTIONS (3)
  - Neuropathy peripheral [Unknown]
  - Dysgeusia [Unknown]
  - Hypoaesthesia [Unknown]
